FAERS Safety Report 7235114-4 (Version None)
Quarter: 2011Q1

REPORT INFORMATION
  Report Type: 
  Country: None (occurrence: None)
  Receive Date: 20110114
  Receipt Date: 20110114
  Transmission Date: 20110831
  Serious: No
  Sender: FDA-Public Use
  Company Number: None

PATIENT
  Sex: Female

DRUGS (2)
  1. OFLAXACIN 400MG TEVA [Suspect]
     Dosage: 400MG TWICE A DAY PO
     Route: 048
     Dates: start: 20101019, end: 20101026
  2. METRONIDOAZOLE [Concomitant]

REACTIONS (1)
  - TENDONITIS [None]
